FAERS Safety Report 21953280 (Version 5)
Quarter: 2024Q4

REPORT INFORMATION
  Report Type: Report from Study
  Country: CA (occurrence: CA)
  Receive Date: 20230204
  Receipt Date: 20241015
  Transmission Date: 20250115
  Serious: Yes (Other)
  Sender: TAKEDA
  Company Number: CA-TAKEDA-2023TUS010728

PATIENT
  Age: 47 Year
  Sex: Male
  Weight: 91 kg

DRUGS (5)
  1. HUMAN IMMUNOGLOBULIN G [Suspect]
     Active Substance: HUMAN IMMUNOGLOBULIN G
     Indication: Primary immunodeficiency syndrome
     Dosage: 16 GRAM, 1/WEEK
     Route: 050
     Dates: start: 20180101
  2. HUMAN IMMUNOGLOBULIN G [Suspect]
     Active Substance: HUMAN IMMUNOGLOBULIN G
     Dosage: 16 GRAM, 1/WEEK
     Route: 058
  3. Covid-19 vaccine [Concomitant]
     Indication: Immunisation
     Dosage: UNK
     Route: 065
  4. INFLUENZA VIRUS VACCINE [Concomitant]
     Active Substance: INFLUENZA VIRUS VACCINE
     Indication: Immunisation
     Dosage: UNK
     Route: 065
  5. CANNABIS SATIVA SUBSP. INDICA TOP [Concomitant]
     Active Substance: CANNABIS SATIVA SUBSP. INDICA TOP
     Dosage: UNK UNK, QD
     Route: 065

REACTIONS (11)
  - Scrotal abscess [Recovered/Resolved]
  - Bronchiectasis [Unknown]
  - Pneumonia [Unknown]
  - Pneumonia bacterial [Unknown]
  - Sinusitis [Unknown]
  - Inguinal hernia [Recovered/Resolved]
  - B-lymphocyte count decreased [Unknown]
  - Benign ear neoplasm [Unknown]
  - Blood immunoglobulin G abnormal [Unknown]
  - Haematuria [Unknown]
  - Cough [Recovered/Resolved]

NARRATIVE: CASE EVENT DATE: 20200101
